FAERS Safety Report 5273947-4 (Version None)
Quarter: 2007Q1

REPORT INFORMATION
  Report Type: 
  Country: None (occurrence: None)
  Receive Date: 20070323
  Receipt Date: 20070315
  Transmission Date: 20070707
  Serious: Yes (Hospitalization)
  Sender: FDA-Public Use
  Company Number: ZA-ELI_LILLY_AND_COMPANY-ZA200703002847

PATIENT
  Age: 83 Year
  Sex: Male

DRUGS (3)
  1. GEMZAR [Suspect]
     Indication: PANCREATIC CARCINOMA
     Dosage: 1900 MG/M2, ON DAY 1+8; 21 DAY CYCLE
     Route: 042
     Dates: start: 20070208, end: 20070208
  2. ZAMANON [Concomitant]
     Indication: VOMITING
     Dosage: 100 MG, OTHER
     Route: 042
     Dates: start: 20070208, end: 20070208
  3. ZAMANON [Concomitant]
     Dosage: 200 MG, UNKNOWN
     Route: 048
     Dates: start: 20070208, end: 20070210

REACTIONS (3)
  - DEHYDRATION [None]
  - PRESCRIBED OVERDOSE [None]
  - VOMITING [None]
